FAERS Safety Report 7364152-6 (Version None)
Quarter: 2011Q1

REPORT INFORMATION
  Report Type: 
  Country: None (occurrence: None)
  Receive Date: 20110321
  Receipt Date: 20100907
  Transmission Date: 20110831
  Serious: Yes (Hospitalization, Other)
  Sender: FDA-Public Use
  Company Number: US-BAYER-201024777NA

PATIENT
  Sex: Female
  Weight: 90.909 kg

DRUGS (4)
  1. YAZ [Suspect]
     Indication: ANAEMIA
     Route: 048
     Dates: start: 20040201, end: 20091001
  2. JUNEL FE [Concomitant]
     Dosage: UNK
     Dates: start: 20080616
  3. YAZ [Suspect]
     Indication: ORAL CONTRACEPTION
  4. FERROUS SULFATE TAB [Concomitant]

REACTIONS (6)
  - CHOLECYSTITIS ACUTE [None]
  - CHOLECYSTECTOMY [None]
  - CHOLELITHIASIS [None]
  - GALLBLADDER CHOLESTEROLOSIS [None]
  - ABDOMINAL PAIN [None]
  - PANCREATITIS [None]
